FAERS Safety Report 25509547 (Version 1)
Quarter: 2025Q3

REPORT INFORMATION
  Report Type: Spontaneous
  Country: US (occurrence: US)
  Receive Date: 20250703
  Receipt Date: 20250703
  Transmission Date: 20251020
  Serious: No
  Sender: ROCHE
  Company Number: US-ROCHE-10000322282

PATIENT
  Sex: Female

DRUGS (4)
  1. ALECTINIB [Suspect]
     Active Substance: ALECTINIB
     Indication: Non-small cell lung cancer metastatic
     Route: 048
  2. ALECTINIB [Suspect]
     Active Substance: ALECTINIB
     Indication: Metastases to central nervous system
     Dosage: ADJUSTED HER DOSAGE TO 450 MG IN THE MORNING AND 300 MG IN THE EVENING, BASED ON HER PREFERENCE
     Route: 048
  3. ALECTINIB [Suspect]
     Active Substance: ALECTINIB
     Route: 048
     Dates: start: 2020
  4. CRIZOTINIB [Concomitant]
     Active Substance: CRIZOTINIB
     Route: 048
     Dates: start: 2017

REACTIONS (3)
  - Off label use [Unknown]
  - No adverse event [Unknown]
  - Intentional product misuse [Unknown]
